FAERS Safety Report 25510425 (Version 1)
Quarter: 2025Q3

REPORT INFORMATION
  Report Type: Spontaneous
  Country: US (occurrence: US)
  Receive Date: 20250703
  Receipt Date: 20250703
  Transmission Date: 20251021
  Serious: No
  Sender: GALDERMA
  Company Number: US-GALDERMA-US2024016085

PATIENT

DRUGS (2)
  1. ORACEA [Suspect]
     Active Substance: DOXYCYCLINE
     Indication: Rosacea
     Route: 048
  2. ORACEA [Suspect]
     Active Substance: DOXYCYCLINE
     Route: 048

REACTIONS (4)
  - Acne [Unknown]
  - Skin exfoliation [Unknown]
  - Intentional product misuse [Recovered/Resolved]
  - Intentional underdose [Recovered/Resolved]
